FAERS Safety Report 7341659-9 (Version None)
Quarter: 2011Q1

REPORT INFORMATION
  Report Type: 
  Country: None (occurrence: None)
  Receive Date: 20110309
  Receipt Date: 20110304
  Transmission Date: 20110831
  Serious: No
  Sender: FDA-Public Use
  Company Number: US-PFIZER INC-2011048379

PATIENT
  Sex: Female

DRUGS (3)
  1. PRISTIQ [Suspect]
     Indication: DEPRESSION
     Dosage: 150 MG DAILY
     Route: 048
  2. DEPAKOTE [Concomitant]
     Indication: BIPOLAR DISORDER
     Dosage: 1500 MG, 1X/DAY
  3. PROPRANOLOL [Concomitant]
     Indication: ANXIETY
     Dosage: 20 MG, 2X/DAY

REACTIONS (6)
  - FEELING ABNORMAL [None]
  - MALAISE [None]
  - DYSKINESIA [None]
  - TREMOR [None]
  - PALPITATIONS [None]
  - HEADACHE [None]
